FAERS Safety Report 17391494 (Version 1)
Quarter: 2020Q1

REPORT INFORMATION
  Report Type: Spontaneous
  Country: DE (occurrence: DE)
  Receive Date: 20200207
  Receipt Date: 20200207
  Transmission Date: 20200409
  Serious: Yes (Other)
  Sender: FDA-Public Use
  Company Number: DE-ANIPHARMA-2020-DE-000014

PATIENT
  Age: 70 Year
  Sex: Female

DRUGS (2)
  1. CANDESARTAN CILEXETIL. [Suspect]
     Active Substance: CANDESARTAN CILEXETIL
     Indication: HYPERTENSION
     Dosage: 4 MG QD/ 8 MG QD
     Route: 048
     Dates: start: 201904
  2. CARMEN (LERCANIDIPINE HYDROCHLORIDE) [Suspect]
     Active Substance: LERCANIDIPINE HYDROCHLORIDE
     Dosage: 1 DF QD
     Route: 048
     Dates: start: 201904

REACTIONS (1)
  - Cutaneous sarcoidosis [Unknown]

NARRATIVE: CASE EVENT DATE: 201906
